FAERS Safety Report 14846206 (Version 1)
Quarter: 2018Q2

REPORT INFORMATION
  Report Type: Spontaneous
  Country: FR (occurrence: FR)
  Receive Date: 20180504
  Receipt Date: 20180504
  Transmission Date: 20180711
  Serious: Yes (Other)
  Sender: FDA-Public Use
  Company Number: FR-MERCK KGAA-2047196

PATIENT
  Age: 45 Year
  Sex: Female

DRUGS (1)
  1. NOVOTHYROX [Suspect]
     Active Substance: LEVOTHYROXINE SODIUM
     Indication: PRODUCT USED FOR UNKNOWN INDICATION

REACTIONS (17)
  - Hypothyroidism [None]
  - Herpes virus infection [None]
  - Nasopharyngitis [None]
  - Social avoidant behaviour [None]
  - Fatigue [None]
  - Influenza [None]
  - Weight increased [None]
  - Constipation [Not Recovered/Not Resolved]
  - Loss of personal independence in daily activities [None]
  - Aphthous ulcer [None]
  - Gastrointestinal disorder [Not Recovered/Not Resolved]
  - Diarrhoea [Not Recovered/Not Resolved]
  - Mean cell haemoglobin concentration decreased [None]
  - Depressive symptom [None]
  - Hyperthyroidism [None]
  - Tinea versicolour [Not Recovered/Not Resolved]
  - Drug ineffective [None]

NARRATIVE: CASE EVENT DATE: 201708
